FAERS Safety Report 5416879-0 (Version None)
Quarter: 2007Q3

REPORT INFORMATION
  Report Type: 
  Country: None (occurrence: None)
  Receive Date: 20070816
  Receipt Date: 20070806
  Transmission Date: 20080115
  Serious: Yes (Other)
  Sender: FDA-Public Use
  Company Number: DE-PFIZER INC-2003122605

PATIENT
  Sex: Male

DRUGS (1)
  1. VIAGRA [Suspect]
     Indication: ERECTILE DYSFUNCTION
     Dosage: DAILY DOSE:25MG-FREQ:AS NEEDED
     Route: 048

REACTIONS (6)
  - ACUTE STRESS DISORDER [None]
  - FATIGUE [None]
  - GENERAL PHYSICAL HEALTH DETERIORATION [None]
  - PERONEAL MUSCULAR ATROPHY [None]
  - PSYCHOMOTOR SKILLS IMPAIRED [None]
  - VISUAL ACUITY REDUCED [None]
